FAERS Safety Report 8422460-1 (Version None)
Quarter: 2012Q2

REPORT INFORMATION
  Report Type: 
  Country: None (occurrence: None)
  Receive Date: 20120608
  Receipt Date: 20120530
  Transmission Date: 20120825
  Serious: Yes (Hospitalization)
  Sender: FDA-Public Use
  Company Number: US-ABBOTT-12P-163-0940910-00

PATIENT
  Age: 35 Year
  Sex: Female
  Weight: 129 kg

DRUGS (6)
  1. PLACEBO [Suspect]
     Indication: PSORIASIS
     Dates: start: 20110825, end: 20120307
  2. HUMIRA [Suspect]
     Indication: PSORIASIS
     Dosage: 80 MG SINGLE
     Route: 058
     Dates: start: 20120407, end: 20120407
  3. IBUPROFEN (ADVIL) [Concomitant]
     Indication: HEADACHE
     Dates: start: 20100820
  4. NUVARING [Concomitant]
     Indication: CONTRACEPTION
     Dates: start: 20100813
  5. PREDNISONE TAB [Suspect]
     Indication: DRUG HYPERSENSITIVITY
     Route: 048
     Dates: start: 20120319, end: 20120328
  6. HYDROXYZINE [Concomitant]
     Indication: DRUG HYPERSENSITIVITY
     Dates: start: 20120319

REACTIONS (7)
  - MICROCYTIC ANAEMIA [None]
  - PYREXIA [None]
  - PSORIASIS [None]
  - STAPHYLOCOCCAL SEPSIS [None]
  - MYALGIA [None]
  - ASTHMA [None]
  - CHILLS [None]
